FAERS Safety Report 9503259 (Version 2)
Quarter: 2014Q2

REPORT INFORMATION
  Report Type: Spontaneous
  Country: GB (occurrence: GB)
  Receive Date: 20130906
  Receipt Date: 20140421
  Transmission Date: 20141212
  Serious: Yes (Congenital Anomaly)
  Sender: FDA-Public Use
  Company Number: GB-ELI_LILLY_AND_COMPANY-GB201309001107

PATIENT
  Sex: 0

DRUGS (1)
  1. OLANZAPINE [Suspect]
     Route: 064

REACTIONS (2)
  - Ankyloglossia congenital [Unknown]
  - Foetal exposure during pregnancy [Unknown]
